FAERS Safety Report 19180908 (Version 1)
Quarter: 2021Q2

REPORT INFORMATION
  Report Type: Spontaneous
  Country: US (occurrence: US)
  Receive Date: 20210426
  Receipt Date: 20210426
  Transmission Date: 20210717
  Serious: Yes (Other)
  Sender: FDA-Public Use
  Company Number: US-APOTEX-2021AP009848

PATIENT
  Age: 14 Year
  Sex: Male

DRUGS (1)
  1. IMIQUIMOD. [Suspect]
     Active Substance: IMIQUIMOD
     Indication: MULTIPLE CONGENITAL ABNORMALITIES
     Dosage: UNK
     Route: 061

REACTIONS (2)
  - Haemorrhage [Recovering/Resolving]
  - Condition aggravated [Recovering/Resolving]
